FAERS Safety Report 17218918 (Version 4)
Quarter: 2020Q2

REPORT INFORMATION
  Report Type: Spontaneous
  Country: US (occurrence: US)
  Receive Date: 20191231
  Receipt Date: 20200422
  Transmission Date: 20200713
  Serious: No
  Sender: FDA-Public Use
  Company Number: US-009507513-1912USA012125

PATIENT
  Age: 70 Year
  Sex: Female

DRUGS (4)
  1. SINEMET [Suspect]
     Active Substance: CARBIDOPA\LEVODOPA
     Dosage: UNK
     Route: 048
     Dates: start: 1979, end: 201606
  2. SINEMET [Suspect]
     Active Substance: CARBIDOPA\LEVODOPA
     Dosage: CONCENTRATION: 25/250, UNK
     Route: 048
     Dates: start: 201606, end: 2018
  3. CARBIDOPA (+) LEVODOPA [Suspect]
     Active Substance: CARBIDOPA\LEVODOPA
     Indication: MUSCLE RIGIDITY
     Dosage: DOSE: 25/250; 1 PILL THREE TIMES A DAY
     Route: 048
     Dates: start: 2019
  4. CARBIDOPA (+) LEVODOPA [Suspect]
     Active Substance: CARBIDOPA\LEVODOPA
     Indication: PARKINSONISM

REACTIONS (12)
  - Drug diversion [Unknown]
  - Joint stiffness [Not Recovered/Not Resolved]
  - Eye pain [Unknown]
  - Movement disorder [Not Recovered/Not Resolved]
  - Product availability issue [Unknown]
  - Asthenia [Not Recovered/Not Resolved]
  - Muscle rigidity [Not Recovered/Not Resolved]
  - Arthralgia [Not Recovered/Not Resolved]
  - Suspected counterfeit product [Unknown]
  - Product availability issue [Unknown]
  - Drug ineffective [Not Recovered/Not Resolved]
  - Headache [Unknown]

NARRATIVE: CASE EVENT DATE: 201606
